FAERS Safety Report 14205656 (Version 2)
Quarter: 2017Q4

REPORT INFORMATION
  Report Type: Spontaneous
  Country: JP (occurrence: JP)
  Receive Date: 20171120
  Receipt Date: 20171212
  Transmission Date: 20180321
  Serious: Yes (Hospitalization)
  Sender: FDA-Public Use
  Company Number: GXJP2017JP001754

PATIENT
  Age: 56 Year
  Sex: Female
  Weight: 41.3 kg

DRUGS (6)
  1. ZOLEDRONIC ACID FOR I.V. INFUSION [Suspect]
     Active Substance: ZOLEDRONIC ACID
     Indication: METASTASES TO BONE
     Dosage: 4 MG, QD
     Route: 041
     Dates: start: 20140924
  2. BASEN [Concomitant]
     Active Substance: VOGLIBOSE
     Indication: PRODUCT USED FOR UNKNOWN INDICATION
     Dosage: 0.3 MG, TID
     Route: 048
  3. ZOLEDRONIC ACID FOR I.V. INFUSION [Suspect]
     Active Substance: ZOLEDRONIC ACID
     Dosage: 3.5 MG, QD
     Route: 042
     Dates: end: 20171011
  4. ZOMETA [Suspect]
     Active Substance: ZOLEDRONIC ACID
     Indication: METASTASES TO BONE
     Dosage: 4 MG, QD
     Route: 041
     Dates: start: 20140430, end: 20140903
  5. AMARYL [Concomitant]
     Active Substance: GLIMEPIRIDE
     Indication: PRODUCT USED FOR UNKNOWN INDICATION
     Dosage: 1 MG, BID
     Route: 048
  6. METFORMIN HYDROCHLORIDE. [Concomitant]
     Active Substance: METFORMIN HYDROCHLORIDE
     Indication: PRODUCT USED FOR UNKNOWN INDICATION
     Dosage: 250 MG, TID
     Route: 048

REACTIONS (5)
  - Osteonecrosis of jaw [Not Recovered/Not Resolved]
  - Swelling [Unknown]
  - Erythema [Unknown]
  - Purulence [Unknown]
  - Pain [Unknown]

NARRATIVE: CASE EVENT DATE: 20171026
